FAERS Safety Report 22594103 (Version 2)
Quarter: 2023Q2

REPORT INFORMATION
  Report Type: Report from Study
  Country: MX (occurrence: MX)
  Receive Date: 20230613
  Receipt Date: 20230617
  Transmission Date: 20230722
  Serious: Yes (Death)
  Sender: FDA-Public Use
  Company Number: MX-002147023-NVSC2023MX134217

PATIENT
  Sex: Male
  Weight: 58 kg

DRUGS (2)
  1. ENTRESTO [Suspect]
     Active Substance: SACUBITRIL\VALSARTAN
     Indication: Hypertension
     Dosage: 1 DOSAGE FORM, BID (100MG) (TWICE DAILY / IN THE MORNING AND AT NIGHT)
     Route: 048
     Dates: start: 202304, end: 20230501
  2. ENTRESTO [Suspect]
     Active Substance: SACUBITRIL\VALSARTAN
     Indication: Cardiac disorder
     Dosage: 2 DOSAGE FORM, BID (4 TABLETS DAILY (2 IN THE MORNING AND 2 AT NIGHT))
     Route: 048
     Dates: start: 20230502

REACTIONS (1)
  - Cardiac arrest [Fatal]
